FAERS Safety Report 6022803-2 (Version None)
Quarter: 2008Q4

REPORT INFORMATION
  Report Type: 
  Country: None (occurrence: None)
  Receive Date: 20081230
  Receipt Date: 20081218
  Transmission Date: 20090506
  Serious: Yes (Other)
  Sender: FDA-Public Use
  Company Number: ES-ELI_LILLY_AND_COMPANY-ES200812004619

PATIENT
  Age: 60 Year
  Sex: Female

DRUGS (5)
  1. ZYPREXA [Suspect]
     Dosage: 10 MG, UNK
     Route: 048
     Dates: start: 20081003
  2. CITALOPRAM [Concomitant]
     Dosage: 20 MG, DAILY (1/D)
     Route: 048
     Dates: start: 20081003
  3. ABILIFY [Interacting]
     Dosage: 5 MG, DAILY (1/D)
     Route: 048
  4. CLOPIXOL ACUPHASE [Interacting]
     Indication: SCHIZOPHRENIA
     Dosage: 10 MG, DAILY (1/D)
     Route: 030
  5. NORFENAZIN [Interacting]
     Dosage: 75 MG, DAILY (1/D)
     Route: 048

REACTIONS (2)
  - DRUG INTERACTION [None]
  - LEUKOPENIA [None]
